FAERS Safety Report 5925454-0 (Version None)
Quarter: 2008Q4

REPORT INFORMATION
  Report Type: 
  Country: None (occurrence: None)
  Receive Date: 20081021
  Receipt Date: 20081016
  Transmission Date: 20090506
  Serious: Yes (Life-Threatening, Hospitalization)
  Sender: FDA-Public Use
  Company Number: US-MERCK-0810USA01490

PATIENT
  Sex: Female
  Weight: 57 kg

DRUGS (1)
  1. SINGULAIR [Suspect]
     Indication: HOUSE DUST ALLERGY
     Route: 048

REACTIONS (1)
  - SUICIDAL BEHAVIOUR [None]
